FAERS Safety Report 11685561 (Version 3)
Quarter: 2015Q4

REPORT INFORMATION
  Report Type: Spontaneous
  Country: BE (occurrence: BE)
  Receive Date: 20151030
  Receipt Date: 20151214
  Transmission Date: 20160304
  Serious: Yes (Other)
  Sender: FDA-Public Use
  Company Number: BE-LEO PHARMA-237790

PATIENT
  Age: 53 Year
  Sex: Male

DRUGS (1)
  1. PICATO [Suspect]
     Active Substance: INGENOL MEBUTATE
     Indication: ACTINIC KERATOSIS
     Route: 061
     Dates: start: 20141027, end: 20141029

REACTIONS (1)
  - Sarcoma of skin [Recovered/Resolved]

NARRATIVE: CASE EVENT DATE: 201510
